FAERS Safety Report 5052268-9 (Version None)
Quarter: 2006Q2

REPORT INFORMATION
  Report Type: 
  Country: None (occurrence: None)
  Receive Date: 20060614
  Receipt Date: 20060222
  Transmission Date: 20061013
  Serious: Yes (Other)
  Sender: FDA-Public Use
  Company Number: 437924

PATIENT
  Age: 63 Year
  Sex: Female

DRUGS (2)
  1. BONIVA [Suspect]
     Indication: DRUG USE FOR UNKNOWN INDICATION
     Dosage: 150 MG 1 PER MONTH ORAL
     Route: 048
     Dates: start: 20050815
  2. NORVASC [Concomitant]

REACTIONS (1)
  - HYPERTENSION [None]
